FAERS Safety Report 9049719 (Version 1)
Quarter: 2013Q1

REPORT INFORMATION
  Report Type: Spontaneous
  Country: US (occurrence: US)
  Receive Date: 20130205
  Receipt Date: 20130205
  Transmission Date: 20140127
  Serious: No
  Sender: FDA-Public Use
  Company Number: US-TEVA-384030USA

PATIENT
  Sex: Male
  Weight: 110 kg

DRUGS (2)
  1. TREANDA [Suspect]
     Indication: MANTLE CELL LYMPHOMA
  2. RITUXAN [Concomitant]

REACTIONS (1)
  - Disease progression [Unknown]
